FAERS Safety Report 4783629-0 (Version None)
Quarter: 2005Q3

REPORT INFORMATION
  Report Type: 
  Country: None (occurrence: None)
  Receive Date: 20050929
  Receipt Date: 20050920
  Transmission Date: 20060218
  Serious: Yes (Life-Threatening, Other)
  Sender: FDA-Public Use
  Company Number: US-NOVOPROD-247098

PATIENT
  Age: 0 None
  Sex: Male

DRUGS (4)
  1. NOVOSEVEN [Suspect]
     Indication: HAEMORRHAGE INTRACRANIAL
     Dosage: 4.8 MG
  2. NOVOSEVEN [Suspect]
     Dosage: 2.4 MG
  3. NOVOSEVEN [Suspect]
     Dosage: 4.8 MG
  4. WARFARIN SODIUM [Concomitant]
     Indication: PROTHROMBIN TIME PROLONGED

REACTIONS (4)
  - DIALYSIS [None]
  - DISSEMINATED INTRAVASCULAR COAGULATION [None]
  - MEDICAL DEVICE COMPLICATION [None]
  - PERIPHERAL ISCHAEMIA [None]
